FAERS Safety Report 8992234 (Version 4)
Quarter: 2013Q3

REPORT INFORMATION
  Report Type: Report from Study
  Country: US (occurrence: US)
  Receive Date: 20121231
  Receipt Date: 20130710
  Transmission Date: 20140515
  Serious: Yes (Other)
  Sender: FDA-Public Use
  Company Number: US-ELI_LILLY_AND_COMPANY-US201212007480

PATIENT
  Sex: Female

DRUGS (2)
  1. TERIPARATIDE [Suspect]
     Indication: OSTEOPOROSIS
     Dosage: UNK, QD
     Route: 065
  2. AMOXICILLIN [Suspect]
     Dosage: UNK, UNKNOWN
     Route: 065

REACTIONS (2)
  - Femur fracture [Not Recovered/Not Resolved]
  - Gastrointestinal disorder [Unknown]
